FAERS Safety Report 20351764 (Version 1)
Quarter: 2022Q1

REPORT INFORMATION
  Report Type: Spontaneous
  Country: US (occurrence: US)
  Receive Date: 20220119
  Receipt Date: 20220119
  Transmission Date: 20220423
  Serious: No
  Sender: FDA-Public Use
  Company Number: US-ORGANON-O2112USA002647

PATIENT
  Age: 89 Year
  Sex: Female

DRUGS (6)
  1. REMERON [Suspect]
     Active Substance: MIRTAZAPINE
     Indication: Insomnia
     Dosage: 7.5 MILLIGRAM
     Route: 048
  2. REMERON [Suspect]
     Active Substance: MIRTAZAPINE
     Indication: Depression
     Dosage: ON DAY 36, MIRTAZAPINE INCREASED FROM 7.5 TO 15 MG
     Route: 048
  3. DRONABINOL [Concomitant]
     Active Substance: DRONABINOL
     Indication: Anxiety
     Dosage: 10 MILLIGRAM, BID
  4. DRONABINOL [Concomitant]
     Active Substance: DRONABINOL
     Dosage: 2.5 MILLIGRAM
  5. TRAZODONE HYDROCHLORIDE [Concomitant]
     Active Substance: TRAZODONE HYDROCHLORIDE
     Dosage: 50 MILLIGRAM
  6. TRAZODONE HYDROCHLORIDE [Concomitant]
     Active Substance: TRAZODONE HYDROCHLORIDE
     Dosage: 25 MILLIGRAM

REACTIONS (1)
  - Product use in unapproved indication [Unknown]
